FAERS Safety Report 9348420 (Version 1)
Quarter: 2013Q2

REPORT INFORMATION
  Report Type: Spontaneous
  Country: US (occurrence: US)
  Receive Date: 20130614
  Receipt Date: 20130614
  Transmission Date: 20140414
  Serious: Yes (Hospitalization)
  Sender: FDA-Public Use
  Company Number: US-BAYER-2013-070872

PATIENT
  Age: 14 Year
  Sex: Female
  Weight: 59.86 kg

DRUGS (2)
  1. BEYAZ [Suspect]
  2. CELEBREX [Concomitant]

REACTIONS (2)
  - Deep vein thrombosis [None]
  - Pelvic venous thrombosis [None]
